FAERS Safety Report 7531948-7 (Version None)
Quarter: 2011Q2

REPORT INFORMATION
  Report Type: 
  Country: None (occurrence: None)
  Receive Date: 20110608
  Receipt Date: 20110329
  Transmission Date: 20111010
  Serious: Yes (Other)
  Sender: FDA-Public Use
  Company Number: US-ASTRAZENECA-2011SE18149

PATIENT
  Sex: Female

DRUGS (2)
  1. IXEMPRA KIT [Concomitant]
     Indication: NEOPLASM MALIGNANT
  2. FASLODEX [Suspect]
     Indication: NEOPLASM MALIGNANT
     Route: 042

REACTIONS (2)
  - METASTASES TO LIVER [None]
  - DRUG INEFFECTIVE [None]
